FAERS Safety Report 11806330 (Version 1)
Quarter: 2015Q4

REPORT INFORMATION
  Report Type: Spontaneous
  Country: US (occurrence: None)
  Receive Date: 20151204
  Receipt Date: 20151204
  Transmission Date: 20160305
  Serious: Yes (Other)
  Sender: FDA-Public Use
  Company Number: None

PATIENT
  Age: 51 Year
  Sex: Male
  Weight: 97.52 kg

DRUGS (13)
  1. LACTULOSE. [Concomitant]
     Active Substance: LACTULOSE
  2. OMEPRAZOLE. [Concomitant]
     Active Substance: OMEPRAZOLE
  3. DAKLINZA [Suspect]
     Active Substance: DACLATASVIR
     Indication: HEPATITIS C
     Route: 048
     Dates: start: 20151201
  4. TAZAROTENE TOPICAL [Concomitant]
  5. MAGNESIUM OXIDE. [Concomitant]
     Active Substance: MAGNESIUM OXIDE
  6. SOVALDI [Suspect]
     Active Substance: SOFOSBUVIR
     Indication: HEPATITIS C
     Route: 048
     Dates: start: 20151201
  7. CALCIPOTRIENE TOPICAL SOLUTION, 0.005% (SCALP SOLUTION) [Concomitant]
     Active Substance: CALCIPOTRIENE
  8. ZYRTEC [Concomitant]
     Active Substance: CETIRIZINE HYDROCHLORIDE
  9. ACETAMINOPHEN. [Concomitant]
     Active Substance: ACETAMINOPHEN
  10. FUROSEMIDE. [Concomitant]
     Active Substance: FUROSEMIDE
  11. XIFAXAN [Concomitant]
     Active Substance: RIFAXIMIN
  12. CLOBETASOL PROPIONATE TOPICAL [Concomitant]
  13. ALDACTONE [Concomitant]
     Active Substance: SPIRONOLACTONE

REACTIONS (5)
  - Presyncope [None]
  - Nausea [None]
  - Feeling hot [None]
  - Bradycardia [None]
  - Asthenia [None]

NARRATIVE: CASE EVENT DATE: 20151202
